FAERS Safety Report 24603444 (Version 1)
Quarter: 2024Q4

REPORT INFORMATION
  Report Type: Spontaneous
  Country: US (occurrence: US)
  Receive Date: 20241111
  Receipt Date: 20241111
  Transmission Date: 20250114
  Serious: No
  Sender: BAUSCH AND LOMB
  Company Number: US-BAUSCH-BL-2024-016297

PATIENT
  Age: 75 Year
  Sex: Female
  Weight: 59.02 kg

DRUGS (5)
  1. TRULANCE [Suspect]
     Active Substance: PLECANATIDE
     Indication: Constipation
     Route: 048
  2. TRULANCE [Suspect]
     Active Substance: PLECANATIDE
     Route: 048
     Dates: start: 202410
  3. SENNOSIDES [Concomitant]
     Active Substance: SENNOSIDES
     Indication: Product used for unknown indication
     Dosage: SHE WAS ORIGINALLY TAKING 5 TABLETS OF SENNAKOT (SENNOSIDES 8.6 MG)
     Route: 065
  4. SENNAPLUS [Concomitant]
     Indication: Product used for unknown indication
     Dosage: 5 TABLETS OF SENNA PLUS (SENNOSIDES 8.6 MG/DOCUSATE 50 MG)
     Route: 065
  5. LINZESS [Concomitant]
     Active Substance: LINACLOTIDE
     Indication: Product used for unknown indication
     Route: 065

REACTIONS (3)
  - Diarrhoea [Unknown]
  - Drug ineffective [Unknown]
  - Product quality issue [Unknown]
